FAERS Safety Report 21727244 (Version 2)
Quarter: 2022Q4

REPORT INFORMATION
  Report Type: Spontaneous
  Country: TW (occurrence: TW)
  Receive Date: 20221214
  Receipt Date: 20221222
  Transmission Date: 20230113
  Serious: Yes (Death, Hospitalization, Other)
  Sender: FDA-Public Use
  Company Number: TW-CHUGAI-2022049156

PATIENT
  Age: 67 Year
  Sex: Female
  Weight: 54.1 kg

DRUGS (4)
  1. ACTEMRA [Suspect]
     Active Substance: TOCILIZUMAB
     Indication: Rheumatoid arthritis
     Dosage: 200 MILLIGRAM, ONCE/MONTH
     Route: 041
     Dates: start: 20130320, end: 20221109
  2. PREDNISOLONE [Concomitant]
     Active Substance: PREDNISOLONE
     Indication: Rheumatoid arthritis
     Dosage: 7.5 MILLIGRAM, QD
     Route: 048
     Dates: start: 20221026, end: 20221126
  3. ETORICOXIB [Concomitant]
     Active Substance: ETORICOXIB
     Indication: Rheumatoid arthritis
     Dosage: 60 MILLIGRAM, QD
     Route: 048
     Dates: start: 20100519
  4. LIPITOR [Concomitant]
     Active Substance: ATORVASTATIN CALCIUM
     Indication: Prophylaxis
     Dosage: 20 MILLIGRAM, HS
     Route: 048
     Dates: start: 20180629

REACTIONS (9)
  - Pneumonia [Fatal]
  - Septic shock [Fatal]
  - Lactic acidosis [Unknown]
  - Acute kidney injury [Unknown]
  - Hypoglycaemia [Unknown]
  - Hyperkalaemia [Unknown]
  - Fall [Unknown]
  - Head injury [Unknown]
  - Dizziness [Unknown]

NARRATIVE: CASE EVENT DATE: 20221110
